FAERS Safety Report 17932919 (Version 1)
Quarter: 2020Q2

REPORT INFORMATION
  Report Type: Other
  Country: US (occurrence: US)
  Receive Date: 20200624
  Receipt Date: 20200624
  Transmission Date: 20200714
  Serious: Yes (Other)
  Sender: FDA-Public Use
  Company Number: US-VGYAAN PHARMACEUTICALS LLC-2086593

PATIENT
  Age: 18 Year
  Sex: Male

DRUGS (2)
  1. NADOLOL. [Suspect]
     Active Substance: NADOLOL
     Indication: VENTRICULAR TACHYCARDIA
     Route: 065
  2. FLECAINIDE ACETATE. [Suspect]
     Active Substance: FLECAINIDE ACETATE
     Route: 065

REACTIONS (2)
  - Syncope [Recovered/Resolved]
  - Ventricular tachycardia [Unknown]
